FAERS Safety Report 8141796-5 (Version None)
Quarter: 2012Q1

REPORT INFORMATION
  Report Type: 
  Country: None (occurrence: None)
  Receive Date: 20120216
  Receipt Date: 20120213
  Transmission Date: 20120608
  Serious: Yes (Death, Hospitalization, Other)
  Sender: FDA-Public Use
  Company Number: DE-B.I. PHARMACEUTICALS,INC./RIDGEFIELD-2011-DE-06694DE

PATIENT
  Sex: Female

DRUGS (6)
  1. PANTOPRAZOLE [Concomitant]
     Dosage: 40 MG
  2. PRADAXA [Suspect]
     Indication: ATRIAL FIBRILLATION
     Dosage: 220 MG
     Route: 048
     Dates: start: 20110901
  3. TRAMADOL HCL [Concomitant]
     Dosage: 50 MG AS REQUIRED
  4. BERIPLEX 200 IE [Concomitant]
     Indication: HAEMORRHAGE
  5. DIOVAN HCT [Concomitant]
     Dosage: 80/12,5
  6. ALENDRONIC [Concomitant]
     Dosage: 10 MG

REACTIONS (3)
  - MULTIMORBIDITY [None]
  - HAEMATOCHEZIA [None]
  - DEATH [None]
